FAERS Safety Report 4721239-1 (Version None)
Quarter: 2005Q3

REPORT INFORMATION
  Report Type: 
  Country: None (occurrence: None)
  Receive Date: 20050722
  Receipt Date: 20050712
  Transmission Date: 20060218
  Serious: Yes (Hospitalization)
  Sender: FDA-Public Use
  Company Number: JP-JNJFOC-20050505318

PATIENT
  Sex: Female
  Weight: 46 kg

DRUGS (17)
  1. REMICADE [Suspect]
     Route: 042
  2. REMICADE [Suspect]
     Route: 042
  3. REMICADE [Suspect]
     Route: 042
  4. REMICADE [Suspect]
     Route: 042
  5. REMICADE [Suspect]
     Indication: RHEUMATOID ARTHRITIS
     Route: 042
  6. METHOTREXATE [Suspect]
     Route: 048
  7. METHOTREXATE [Suspect]
     Indication: RHEUMATOID ARTHRITIS
     Route: 048
  8. PREDONIN [Concomitant]
     Indication: RHEUMATOID ARTHRITIS
     Route: 048
  9. VOLTAREN [Concomitant]
     Indication: RHEUMATOID ARTHRITIS
     Route: 048
  10. HYPOCA [Concomitant]
     Indication: HYPERTENSION
     Route: 048
  11. OPALMON [Concomitant]
     Dosage: ^15 RG^ DAILY
     Route: 048
  12. VANCOMIN [Concomitant]
     Route: 048
  13. BENET [Concomitant]
     Indication: OSTEOPOROSIS
     Route: 048
  14. BLOPRESS [Concomitant]
     Route: 048
  15. MARZULENE S [Concomitant]
     Route: 048
  16. MARZULENE S [Concomitant]
     Route: 048
  17. INH [Concomitant]
     Indication: TUBERCULOSIS PROPHYLAXIS
     Route: 048

REACTIONS (6)
  - BLISTER [None]
  - DRUG INEFFECTIVE [None]
  - HERPES ZOSTER [None]
  - PAIN [None]
  - THERAPEUTIC RESPONSE DECREASED [None]
  - ULCERATIVE KERATITIS [None]
